FAERS Safety Report 16420694 (Version 1)
Quarter: 2019Q3

REPORT INFORMATION
  Report Type: Spontaneous
  Country: US (occurrence: US)
  Receive Date: 20190611
  Receipt Date: 20190611
  Transmission Date: 20191004
  Serious: Yes (Hospitalization, Disabling)
  Sender: FDA-Public Use
  Company Number: None

PATIENT
  Age: 72 Year
  Sex: Female
  Weight: 65.25 kg

DRUGS (3)
  1. DABRAFENIB [Concomitant]
     Active Substance: DABRAFENIB
     Dates: start: 20141014
  2. PEMBROLIZUMAB. [Suspect]
     Active Substance: PEMBROLIZUMAB
     Indication: METASTATIC MALIGNANT MELANOMA
     Dosage: ?          OTHER FREQUENCY:ONCE;?
     Route: 045
     Dates: start: 20160323, end: 20160323
  3. TRAMETINIB [Concomitant]
     Active Substance: TRAMETINIB
     Dates: start: 20141014

REACTIONS (2)
  - Hypertension [None]
  - Renal injury [None]

NARRATIVE: CASE EVENT DATE: 20160323
